FAERS Safety Report 18755072 (Version 1)
Quarter: 2021Q1

REPORT INFORMATION
  Report Type: Spontaneous
  Country: US (occurrence: US)
  Receive Date: 20210115
  Receipt Date: 20210115
  Transmission Date: 20210419
  Serious: Yes (Hospitalization)
  Sender: FDA-Public Use
  Company Number: None

PATIENT
  Age: 58 Year
  Sex: Female
  Weight: 47 kg

DRUGS (12)
  1. BIOTIN [Concomitant]
     Active Substance: BIOTIN
  2. BAMLANIVIMAB FOR EUA [Suspect]
     Active Substance: BAMLANIVIMAB
     Indication: COVID-19
     Dates: start: 20201224, end: 20201224
  3. HYDROXYCHLOROQUINE [Concomitant]
     Active Substance: HYDROXYCHLOROQUINE
  4. LEFLUNOMIDE. [Concomitant]
     Active Substance: LEFLUNOMIDE
  5. MULTIVITAMIN [Concomitant]
     Active Substance: VITAMINS
  6. GUAIFENESIN. [Concomitant]
     Active Substance: GUAIFENESIN
  7. OMEGA 3 FATTY ACIDS [Concomitant]
     Active Substance: OMEGA-3 FATTY ACIDS
  8. AMOXICILLIN/CLAVULANATE [Concomitant]
     Active Substance: AMOXICILLIN\CLAVULANATE POTASSIUM
  9. CALCIUM CITRATE [Concomitant]
     Active Substance: CALCIUM CITRATE
  10. CELECOXIB. [Concomitant]
     Active Substance: CELECOXIB
  11. ALBUTEROL. [Concomitant]
     Active Substance: ALBUTEROL
  12. HYDROCHLOROTHIAZIDE. [Concomitant]
     Active Substance: HYDROCHLOROTHIAZIDE

REACTIONS (10)
  - Dyspnoea [None]
  - Decreased appetite [None]
  - Haemoglobin decreased [None]
  - Pulmonary cavitation [None]
  - Lung abscess [None]
  - Night sweats [None]
  - Pneumonia [None]
  - Productive cough [None]
  - Chills [None]
  - Weight decreased [None]

NARRATIVE: CASE EVENT DATE: 20210107
